FAERS Safety Report 6545894-9 (Version None)
Quarter: 2010Q1

REPORT INFORMATION
  Report Type: 
  Country: None (occurrence: None)
  Receive Date: 20100121
  Receipt Date: 20100111
  Transmission Date: 20100710
  Serious: Yes (Hospitalization)
  Sender: FDA-Public Use
  Company Number: SG-GENENTECH-297037

PATIENT
  Age: 48 Year
  Sex: Male

DRUGS (1)
  1. ACTIVASE [Suspect]
     Indication: MYOCARDIAL INFARCTION

REACTIONS (3)
  - DISSEMINATED INTRAVASCULAR COAGULATION [None]
  - MENTAL STATUS CHANGES [None]
  - SEPSIS [None]
